FAERS Safety Report 14955305 (Version 1)
Quarter: 2018Q2

REPORT INFORMATION
  Report Type: Spontaneous
  Country: FR (occurrence: FR)
  Receive Date: 20180531
  Receipt Date: 20180531
  Transmission Date: 20180711
  Serious: Yes (Other)
  Sender: FDA-Public Use
  Company Number: FR-MERCK KGAA-2048735

PATIENT
  Age: 54 Year
  Sex: Female

DRUGS (1)
  1. NOVOTHYROX [Suspect]
     Active Substance: LEVOTHYROXINE SODIUM
     Indication: POST PROCEDURAL HYPOTHYROIDISM
     Dates: start: 201706, end: 2017

REACTIONS (20)
  - Negative thoughts [Recovering/Resolving]
  - Feeling abnormal [Recovering/Resolving]
  - Muscle spasms [Recovering/Resolving]
  - Insomnia [Recovering/Resolving]
  - Suicidal ideation [Recovering/Resolving]
  - Limb discomfort [Recovering/Resolving]
  - Alopecia [Recovering/Resolving]
  - Hot flush [Recovering/Resolving]
  - Anxiety [Recovering/Resolving]
  - Dyspepsia [Recovering/Resolving]
  - Vitamin D decreased [Recovered/Resolved]
  - Irritability [Recovering/Resolving]
  - Fatigue [Recovering/Resolving]
  - Heart rate increased [Recovering/Resolving]
  - Loss of personal independence in daily activities [Recovering/Resolving]
  - Hyperaesthesia [Recovering/Resolving]
  - Hyperhidrosis [Recovering/Resolving]
  - Headache [Recovering/Resolving]
  - Dizziness [Recovering/Resolving]
  - Palpitations [Recovering/Resolving]

NARRATIVE: CASE EVENT DATE: 201706
